FAERS Safety Report 7388344-5 (Version None)
Quarter: 2011Q2

REPORT INFORMATION
  Report Type: 
  Country: None (occurrence: None)
  Receive Date: 20110401
  Receipt Date: 20110317
  Transmission Date: 20111010
  Serious: Yes (Hospitalization, Other)
  Sender: FDA-Public Use
  Company Number: PHHY2011US21487

PATIENT
  Age: 77 Year
  Sex: Female

DRUGS (29)
  1. SYNTHROID [Concomitant]
     Dosage: 125 MG,
  2. ACETAMINOPHEN [Concomitant]
     Dosage: 500 MG FOUR TIMES DAILY
     Dates: start: 20110311
  3. CALCIUM ACETATE [Concomitant]
     Dosage: 1000 MG, QD
     Route: 048
  4. DEPO-ESTRADIOL [Concomitant]
     Dosage: 5 MG/ML MONTHLY
  5. PREMARIN [Concomitant]
     Dosage: 0.625 MG/GM 3 TIIMES WEEK
     Route: 067
  6. FLAGYL [Concomitant]
  7. BLOOD THINNER [Concomitant]
  8. CALCIUM [Concomitant]
  9. VITAMIN D [Concomitant]
  10. MULTI-VITAMINS [Concomitant]
     Dosage: DAILY
     Route: 048
  11. CYANOCOBALAMIN [Concomitant]
     Dosage: 1000 MCG
  12. PHENERGAN HCL [Concomitant]
     Dosage: 25 MG, PRN
     Route: 048
  13. MORPHIN HCL [Concomitant]
     Dosage: 2.5 MG
     Route: 042
  14. DIPYRAMID [Concomitant]
     Dosage: 75 MG
  15. PERSANTINE [Concomitant]
     Dosage: 75 MG, BID
     Dates: start: 20101201
  16. ZINC GLUCONATE [Concomitant]
     Dosage: 50 MG, BID
     Route: 048
  17. IRON [Concomitant]
     Dosage: 325 MG,
  18. CORAL CALCIUM (CALCIUM/ERGOCALCIFEROL) [Concomitant]
     Dosage: 2000 MG,
  19. ZOFRAN [Concomitant]
     Dosage: UNK
     Route: 030
  20. POTASSIUM [Concomitant]
     Dosage: 10 VK
  21. LORTAB [Concomitant]
     Dosage: 500 MG, BID
     Dates: start: 20110224
  22. ACETAMINOPHEN [Concomitant]
     Dosage: UNK
     Route: 048
  23. RECLAST [Suspect]
     Indication: OSTEOPOROSIS
     Dosage: 5 MG YEARLY
     Route: 042
     Dates: start: 20110224, end: 20110228
  24. CALCITRIOL [Concomitant]
     Dosage: 25 MG, TID
  25. FERROUS SULFATE TAB [Concomitant]
     Dosage: 325 MG, BID
     Route: 048
  26. CLARITIN [Concomitant]
     Dosage: 10 MG, QD
     Route: 048
  27. DEPO-MEDROL [Concomitant]
  28. LEVOTHYROXINE SODIUM [Concomitant]
     Dosage: 200 MCG DAILY
     Route: 048
  29. POTASSIUM CHLORIDE [Concomitant]
     Dosage: 10 MEQ TWO TIMES DAILY
     Route: 048

REACTIONS (25)
  - HEADACHE [None]
  - CHILLS [None]
  - DIZZINESS [None]
  - LEUKOCYTOCLASTIC VASCULITIS [None]
  - BURNING SENSATION [None]
  - BEDRIDDEN [None]
  - MYALGIA [None]
  - ANAEMIA [None]
  - DRUG HYPERSENSITIVITY [None]
  - GASTROOESOPHAGEAL REFLUX DISEASE [None]
  - MALAISE [None]
  - CHEST PAIN [None]
  - NECK PAIN [None]
  - MUSCULOSKELETAL STIFFNESS [None]
  - PYREXIA [None]
  - ABDOMINAL PAIN [None]
  - DYSPNOEA [None]
  - ARTHRALGIA [None]
  - PAIN [None]
  - NAUSEA [None]
  - FEELING ABNORMAL [None]
  - BONE PAIN [None]
  - CONSTIPATION [None]
  - BACK PAIN [None]
  - TREMOR [None]
